FAERS Safety Report 9375996 (Version 1)
Quarter: 2013Q2

REPORT INFORMATION
  Report Type: Spontaneous
  Country: US (occurrence: US)
  Receive Date: 20130629
  Receipt Date: 20130629
  Transmission Date: 20140414
  Serious: No
  Sender: FDA-Public Use
  Company Number: US-B.I. PHARMACEUTICALS,INC./RIDGEFIELD-2013-BI-18425BP

PATIENT
  Age: 61 Year
  Sex: Female
  Weight: 60 kg

DRUGS (3)
  1. ATROVENT [Suspect]
     Indication: BRONCHITIS CHRONIC
     Dosage: 8 PUF
     Route: 055
     Dates: start: 20130510
  2. PROAIR [Concomitant]
     Indication: BRONCHITIS
     Dosage: 4 PUF
     Route: 055
  3. ADVAIR [Concomitant]
     Indication: BRONCHITIS
     Dosage: 2 PUF
     Route: 055

REACTIONS (2)
  - Pruritus [Not Recovered/Not Resolved]
  - Pain [Not Recovered/Not Resolved]
